FAERS Safety Report 7866953-4 (Version None)
Quarter: 2011Q4

REPORT INFORMATION
  Report Type: 
  Country: None (occurrence: None)
  Receive Date: 20111028
  Receipt Date: 20111017
  Transmission Date: 20120403
  Serious: Yes (Hospitalization, Other)
  Sender: FDA-Public Use
  Company Number: US-ROCHE-1005284

PATIENT
  Sex: Female

DRUGS (1)
  1. ZELBORAF [Suspect]
     Indication: METASTATIC MALIGNANT MELANOMA
     Route: 048
     Dates: start: 20110801

REACTIONS (5)
  - BLOOD ALKALINE PHOSPHATASE INCREASED [None]
  - SQUAMOUS CELL CARCINOMA [None]
  - ASPARTATE AMINOTRANSFERASE INCREASED [None]
  - METASTASES TO CENTRAL NERVOUS SYSTEM [None]
  - LIVER FUNCTION TEST ABNORMAL [None]
